FAERS Safety Report 8887468 (Version 1)
Quarter: 2012Q4

REPORT INFORMATION
  Report Type: Spontaneous
  Country: JP (occurrence: None)
  Receive Date: 20121031
  Receipt Date: 20121031
  Transmission Date: 20130627
  Serious: Yes (Other)
  Sender: FDA-Public Use
  Company Number: 2012P1061109

PATIENT
  Age: 42 Year
  Sex: Female

DRUGS (4)
  1. PHENOBARBITAL [Suspect]
     Indication: EPILEPSY
  2. PHENYTOIN [Suspect]
  3. VALPROATE [Concomitant]
  4. CARBAMAZEPINE [Concomitant]

REACTIONS (2)
  - Dizziness [None]
  - Nystagmus [None]
